FAERS Safety Report 9420099 (Version 1)
Quarter: 2013Q3

REPORT INFORMATION
  Report Type: Spontaneous
  Country: US (occurrence: US)
  Receive Date: 20130725
  Receipt Date: 20130725
  Transmission Date: 20140515
  Serious: Yes (Other)
  Sender: FDA-Public Use
  Company Number: US-GILEAD-2013-0079901

PATIENT
  Sex: Male

DRUGS (1)
  1. ATRIPLA [Suspect]
     Indication: HIV INFECTION
     Dosage: 1100 MG, UNK

REACTIONS (5)
  - Loss of consciousness [Unknown]
  - Swollen tongue [Unknown]
  - Vomiting [Unknown]
  - Diarrhoea [Unknown]
  - Depression [Unknown]
